FAERS Safety Report 19537007 (Version 1)
Quarter: 2021Q3

REPORT INFORMATION
  Report Type: Spontaneous
  Country: FR (occurrence: FR)
  Receive Date: 20210713
  Receipt Date: 20210713
  Transmission Date: 20211014
  Serious: Yes (Hospitalization, Other)
  Sender: FDA-Public Use
  Company Number: FR-ACCORD-230823

PATIENT
  Age: 40 Year
  Sex: Male

DRUGS (1)
  1. ATORVASTATIN/ATORVASTATIN CALCIUM [Suspect]
     Active Substance: ATORVASTATIN CALCIUM
     Indication: MYOCARDIAL INFARCTION

REACTIONS (4)
  - Jessner^s lymphocytic infiltration [Recovered/Resolved]
  - Hepatic cytolysis [Recovered/Resolved]
  - Immune-mediated myositis [Recovered/Resolved]
  - Off label use [Unknown]
